FAERS Safety Report 8583745-1 (Version None)
Quarter: 2012Q3

REPORT INFORMATION
  Report Type: 
  Country: None (occurrence: None)
  Receive Date: 20120810
  Receipt Date: 20120723
  Transmission Date: 20120928
  Serious: Yes (Hospitalization, Other)
  Sender: FDA-Public Use
  Company Number: BR-MSD-1207BRA005955

PATIENT

DRUGS (4)
  1. PEG-INTRON [Suspect]
     Indication: HEPATITIS C
     Dosage: UNK UNK, QW
     Dates: start: 20120314, end: 20120707
  2. RIBAVIRIN [Suspect]
     Indication: HEPATITIS C
     Dosage: UNK
     Dates: start: 20120314, end: 20120707
  3. VICTRELIS [Suspect]
     Indication: HEPATITIS C
     Dosage: UNK, TID
     Route: 048
     Dates: start: 20120404, end: 20120707
  4. PEGASYS [Concomitant]
     Indication: HEPATITIS
     Dosage: UNK UNK, QW
     Dates: start: 20120301, end: 20120707

REACTIONS (1)
  - PANCREATITIS ACUTE [None]
